FAERS Safety Report 24739332 (Version 2)
Quarter: 2024Q4

REPORT INFORMATION
  Report Type: Spontaneous
  Country: ES (occurrence: ES)
  Receive Date: 20241216
  Receipt Date: 20241226
  Transmission Date: 20250115
  Serious: Yes (Hospitalization, Other)
  Sender: SANOFI AVENTIS
  Company Number: ES-SA-2024SA369118

PATIENT
  Age: 11 Year
  Sex: Female

DRUGS (1)
  1. DUPIXENT [Suspect]
     Active Substance: DUPILUMAB
     Indication: Dermatitis atopic
     Dosage: 300 MG
     Route: 065
     Dates: start: 202206

REACTIONS (10)
  - Guillain-Barre syndrome [Recovered/Resolved]
  - Campylobacter gastroenteritis [Unknown]
  - Dislocation of vertebra [Recovered/Resolved]
  - Gait disturbance [Recovered/Resolved]
  - Hyporeflexia [Unknown]
  - Asthenia [Unknown]
  - Pain [Unknown]
  - Dyspnoea [Unknown]
  - Chest pain [Unknown]
  - Insomnia [Unknown]

NARRATIVE: CASE EVENT DATE: 20230701
